FAERS Safety Report 19207707 (Version 1)
Quarter: 2021Q2

REPORT INFORMATION
  Report Type: Spontaneous
  Country: GB (occurrence: GB)
  Receive Date: 20210503
  Receipt Date: 20210503
  Transmission Date: 20210717
  Serious: Yes (Other)
  Sender: FDA-Public Use
  Company Number: GB-TEVA-2021-GB-1906241

PATIENT
  Age: 2 Week
  Sex: Male
  Weight: 3 kg

DRUGS (1)
  1. LACTULOSE LIQUID [Suspect]
     Active Substance: LACTULOSE
     Indication: CONSTIPATION NEONATAL
     Dosage: 2.5ML
     Route: 048
     Dates: start: 20210416, end: 20210417

REACTIONS (1)
  - Colitis ulcerative [Recovered/Resolved]

NARRATIVE: CASE EVENT DATE: 20210417
